FAERS Safety Report 21218335 (Version 1)
Quarter: 2022Q3

REPORT INFORMATION
  Report Type: Report from Study
  Country: KE (occurrence: KE)
  Receive Date: 20220816
  Receipt Date: 20220816
  Transmission Date: 20221027
  Serious: Yes (Hospitalization)
  Sender: FDA-Public Use
  Company Number: KE-NOVARTISPH-NVSC2022KE184669

PATIENT
  Age: 86 Year
  Sex: Female

DRUGS (1)
  1. SACUBITRIL\VALSARTAN [Suspect]
     Active Substance: SACUBITRIL\VALSARTAN
     Indication: Cardiac failure
     Dosage: 1 DOSAGE FORM, BID, (100 MG)
     Route: 048
     Dates: start: 2021

REACTIONS (1)
  - Accident at home [Recovering/Resolving]

NARRATIVE: CASE EVENT DATE: 20220616
